FAERS Safety Report 7671907-7 (Version None)
Quarter: 2011Q3

REPORT INFORMATION
  Report Type: 
  Country: None (occurrence: None)
  Receive Date: 20110809
  Receipt Date: 20110722
  Transmission Date: 20111222
  Serious: Yes (Hospitalization)
  Sender: FDA-Public Use
  Company Number: US-GLAXOSMITHKLINE-A0875947A

PATIENT
  Age: 43 Year
  Sex: Male
  Weight: 100 kg

DRUGS (11)
  1. INSULIN [Concomitant]
  2. LYRICA [Concomitant]
  3. METOPROLOL TARTRATE [Concomitant]
  4. CLONIDINE [Concomitant]
  5. CADUET [Concomitant]
  6. ALTACE [Concomitant]
  7. AVANDIA [Suspect]
     Indication: TYPE 2 DIABETES MELLITUS
     Dosage: 8MG PER DAY
     Route: 048
     Dates: start: 20050801, end: 20081201
  8. HYDRALAZINE HCL [Concomitant]
  9. KLONOPIN [Concomitant]
  10. TRAMADOL HCL [Concomitant]
  11. TRICOR [Concomitant]

REACTIONS (2)
  - MYOCARDIAL INFARCTION [None]
  - CARDIAC FAILURE CONGESTIVE [None]
